FAERS Safety Report 5709617-5 (Version None)
Quarter: 2008Q2

REPORT INFORMATION
  Report Type: 
  Country: None (occurrence: None)
  Receive Date: 20080418
  Receipt Date: 20080408
  Transmission Date: 20081010
  Serious: Yes (Death)
  Sender: FDA-Public Use
  Company Number: B0509361A

PATIENT
  Age: 30 Year
  Sex: Male
  Weight: 62 kg

DRUGS (5)
  1. VENTOLIN [Suspect]
     Indication: ASTHMA
     Route: 055
  2. PROZAC [Concomitant]
     Dosage: 20MG PER DAY
     Route: 048
  3. EFFERALGAN CODEINE [Concomitant]
     Route: 048
  4. IMOVANE [Concomitant]
     Route: 048
  5. LEXOMIL [Concomitant]
     Route: 048

REACTIONS (4)
  - CARDIAC ARREST [None]
  - DEATH [None]
  - DRUG ABUSE [None]
  - OVERDOSE [None]
